FAERS Safety Report 6040820-3 (Version None)
Quarter: 2009Q1

REPORT INFORMATION
  Report Type: 
  Country: None (occurrence: None)
  Receive Date: 20090116
  Receipt Date: 20080604
  Transmission Date: 20090719
  Serious: No
  Sender: FDA-Public Use
  Company Number: US-BRISTOL-MYERS SQUIBB COMPANY-14216436

PATIENT
  Age: 38 Year
  Sex: Female
  Weight: 83 kg

DRUGS (6)
  1. ABILIFY [Suspect]
     Indication: TRISOMY 21
  2. ABILIFY [Suspect]
     Indication: ABNORMAL BEHAVIOUR
  3. ARICEPT [Concomitant]
  4. ZOLOFT [Concomitant]
  5. ESTROGENIC SUBSTANCE [Concomitant]
     Dosage: ESTROGEN THERAPY
  6. MULTI-VITAMIN [Concomitant]

REACTIONS (1)
  - WEIGHT INCREASED [None]
